FAERS Safety Report 7929576-4 (Version None)
Quarter: 2011Q4

REPORT INFORMATION
  Report Type: 
  Country: None (occurrence: None)
  Receive Date: 20111108
  Receipt Date: 20110401
  Transmission Date: 20120403
  Serious: Yes (Hospitalization)
  Sender: FDA-Public Use
  Company Number: PHHY2011US27319

PATIENT
  Sex: Male

DRUGS (4)
  1. VELCADE [Concomitant]
  2. CYTOXAN [Concomitant]
  3. ZOMETA [Suspect]
     Dosage: IV INFUSION
  4. DEXAMETHASONE [Concomitant]

REACTIONS (1)
  - RENAL FAILURE ACUTE [None]
